FAERS Safety Report 7559458-1 (Version None)
Quarter: 2011Q2

REPORT INFORMATION
  Report Type: 
  Country: None (occurrence: None)
  Receive Date: 20110617
  Receipt Date: 20110617
  Transmission Date: 20111010
  Serious: Yes (Life-Threatening, Hospitalization)
  Sender: FDA-Public Use
  Company Number: None

PATIENT
  Age: 79 Year
  Sex: Male
  Weight: 92 kg

DRUGS (2)
  1. HEPARIN SODIUM 1,000 UNITS IN SODIUM CHLORIDE 0.9% [Suspect]
     Indication: ATRIAL FIBRILLATION
     Dosage: 2040 IU PER HOUR IV
     Route: 042
     Dates: start: 20101008, end: 20101018
  2. HEPARIN SODIUM 1,000 UNITS IN SODIUM CHLORIDE 0.9% [Suspect]
     Indication: ACUTE MYOCARDIAL INFARCTION
     Dosage: 2040 IU PER HOUR IV
     Route: 042
     Dates: start: 20101008, end: 20101018

REACTIONS (4)
  - ABDOMINAL WALL HAEMORRHAGE [None]
  - HAEMOGLOBIN DECREASED [None]
  - ABDOMINAL WALL HAEMATOMA [None]
  - MASS [None]
